FAERS Safety Report 22001433 (Version 1)
Quarter: 2023Q1

REPORT INFORMATION
  Report Type: Report from Study
  Country: US (occurrence: US)
  Receive Date: 20230216
  Receipt Date: 20230216
  Transmission Date: 20230418
  Serious: Yes (Other)
  Sender: FDA-Public Use
  Company Number: US-JNJFOC-20230228583

PATIENT
  Sex: Female

DRUGS (5)
  1. SPRAVATO [Suspect]
     Active Substance: ESKETAMINE
     Indication: Depression
     Dosage: 56 MG, 4 DOSES
     Dates: start: 20190903, end: 20190912
  2. SPRAVATO [Suspect]
     Active Substance: ESKETAMINE
     Dosage: 84 MG, 1 DOSE
     Dates: start: 20190917, end: 20190917
  3. SPRAVATO [Suspect]
     Active Substance: ESKETAMINE
     Dosage: 56 MG, 1 DOSE
     Dates: start: 20190919, end: 20190919
  4. SPRAVATO [Suspect]
     Active Substance: ESKETAMINE
     Dosage: 84 MG, 40 DOSES;
     Dates: start: 20190924, end: 20220804
  5. SPRAVATO [Suspect]
     Active Substance: ESKETAMINE
     Dosage: END DOSE
     Dates: end: 20221010

REACTIONS (1)
  - Transient ischaemic attack [Unknown]
